FAERS Safety Report 18586589 (Version 1)
Quarter: 2020Q4

REPORT INFORMATION
  Report Type: Spontaneous
  Country: US (occurrence: US)
  Receive Date: 20201207
  Receipt Date: 20201207
  Transmission Date: 20210114
  Serious: Yes (Death)
  Sender: FDA-Public Use
  Company Number: None

PATIENT
  Age: 62 Year
  Sex: Female

DRUGS (10)
  1. ONDANSETRON [Concomitant]
     Active Substance: ONDANSETRON
  2. FUROSEMIDE. [Concomitant]
     Active Substance: FUROSEMIDE
  3. CAPECITABINE. [Suspect]
     Active Substance: CAPECITABINE
     Indication: PRODUCT USED FOR UNKNOWN INDICATION
     Route: 048
     Dates: end: 20201202
  4. HALOPERIDOL. [Concomitant]
     Active Substance: HALOPERIDOL
  5. METHYLPRED [Concomitant]
     Active Substance: METHYLPREDNISOLONE
  6. MORPHINE SUL. [Concomitant]
  7. OLANZAPINE. [Concomitant]
     Active Substance: OLANZAPINE
  8. SPIRONOLACT [Concomitant]
     Active Substance: SPIRONOLACTONE
  9. OXYCODONE [Concomitant]
     Active Substance: OXYCODONE
  10. LORAZEPAM. [Concomitant]
     Active Substance: LORAZEPAM

REACTIONS (1)
  - Death [None]

NARRATIVE: CASE EVENT DATE: 20201202
